FAERS Safety Report 9667227 (Version 2)
Quarter: 2014Q1

REPORT INFORMATION
  Report Type: Spontaneous
  Country: US (occurrence: US)
  Receive Date: 20131104
  Receipt Date: 20140131
  Transmission Date: 20141002
  Serious: Yes (Hospitalization, Disabling)
  Sender: FDA-Public Use
  Company Number: US-BIOGENIDEC-2013BI090415

PATIENT
  Age: 24 Year
  Sex: Female

DRUGS (4)
  1. TECFIDERA [Suspect]
     Indication: MULTIPLE SCLEROSIS
     Route: 048
  2. TYLENOL WITH CODEINE [Concomitant]
  3. PROPRANOLOL HCL [Concomitant]
  4. KLONOPIN [Concomitant]

REACTIONS (2)
  - Multiple sclerosis relapse [Unknown]
  - Abasia [Unknown]
